FAERS Safety Report 9691273 (Version 1)
Quarter: 2013Q4

REPORT INFORMATION
  Report Type: Spontaneous
  Country: DE (occurrence: DE)
  Receive Date: 20131115
  Receipt Date: 20131115
  Transmission Date: 20140711
  Serious: Yes (Hospitalization)
  Sender: FDA-Public Use
  Company Number: DE-ABBVIE-13P-062-1168398-00

PATIENT
  Sex: Male

DRUGS (4)
  1. HUMIRA [Suspect]
     Indication: ANKYLOSING SPONDYLITIS
     Route: 058
  2. CORTISOL [Concomitant]
     Indication: PRODUCT USED FOR UNKNOWN INDICATION
  3. AMITRYPTILIN [Concomitant]
     Indication: PRODUCT USED FOR UNKNOWN INDICATION
  4. ZYMBALTA [Concomitant]
     Indication: PRODUCT USED FOR UNKNOWN INDICATION

REACTIONS (3)
  - Myalgia [Unknown]
  - Blood creatine phosphokinase increased [Unknown]
  - Suicidal ideation [Unknown]
